FAERS Safety Report 6464661-8 (Version None)
Quarter: 2009Q4

REPORT INFORMATION
  Report Type: 
  Country: None (occurrence: None)
  Receive Date: 20091201
  Receipt Date: 20091019
  Transmission Date: 20100525
  Serious: Yes (Death)
  Sender: FDA-Public Use
  Company Number: US-ELI_LILLY_AND_COMPANY-US200910004753

PATIENT
  Sex: Female

DRUGS (22)
  1. CYMBALTA [Suspect]
     Indication: NEURALGIA
     Dosage: 30 MG, DAILY (1/D)
     Dates: start: 20090521, end: 20090528
  2. CYMBALTA [Suspect]
     Dosage: 60 MG, DAILY (1/D)
     Dates: start: 20090529
  3. OXYCODONE HCL AND ACETAMINOPHEN [Concomitant]
     Dosage: 1 D/F, 3/D
  4. OXYCODONE HCL AND ACETAMINOPHEN [Concomitant]
     Dosage: 1 D/F, AS NEEDED
  5. LEVOTHYROXINE SODIUM [Concomitant]
     Dosage: 87.5 UG, EACH MORNING
  6. LISINOPRIL AND HYDROCHLOROTHIAZIDE [Concomitant]
     Dosage: UNK, EACH MORNING
  7. GABAPENTIN [Concomitant]
     Dosage: 600 MG, 3/D
  8. PENTOXIFYLLINE [Concomitant]
     Dosage: 400 MG, 2/D
  9. DICLOFENAC SODIUM [Concomitant]
     Dosage: 50 MG, 2/D
  10. PREMARIN [Concomitant]
     Dosage: 0.3 MG, QOD
  11. METFORMIN HCL [Concomitant]
     Dosage: 500 MG, 2/D
  12. FERROUS GLUCONATE [Concomitant]
     Dosage: 324 MG, EACH MORNING
  13. SIMVASTATIN [Concomitant]
     Dosage: 20 MG, DAILY (1/D)
  14. PAROXETINE HCL [Concomitant]
     Dosage: 20 MG, DAILY (1/D)
  15. NAMENDA [Concomitant]
     Dosage: 10 MG, DAILY (1/D)
  16. ASPIRIN [Concomitant]
     Dosage: 81 MG, DAILY (1/D)
  17. NORTRIPTYLINE HCL [Concomitant]
     Dosage: 25 MG, 2/D
  18. LORAZEPAM [Concomitant]
     Dosage: 1 MG, AS NEEDED
  19. ZYRTEC [Concomitant]
     Dosage: 10 MG, AS NEEDED
  20. NASONEX [Concomitant]
     Dosage: 1 D/F, AS NEEDED
     Route: 045
  21. RESTASIS [Concomitant]
     Dosage: 1 GTT, 2/D
     Route: 047
  22. THERA TEARS [Concomitant]
     Dosage: 1 GTT, AS NEEDED
     Route: 047

REACTIONS (1)
  - MYOCARDIAL INFARCTION [None]
